FAERS Safety Report 9300927 (Version 1)
Quarter: 2013Q2

REPORT INFORMATION
  Report Type: Spontaneous
  Country: NL (occurrence: NL)
  Receive Date: 20130521
  Receipt Date: 20130521
  Transmission Date: 20140414
  Serious: Yes (Hospitalization)
  Sender: FDA-Public Use
  Company Number: NL-ASTRAZENECA-2013SE34405

PATIENT
  Age: 35 Year
  Sex: Female

DRUGS (8)
  1. OMEPRAZOL [Suspect]
     Indication: DYSPEPSIA
     Route: 048
     Dates: start: 20130422
  2. OMEPRAZOL [Suspect]
     Indication: DYSPEPSIA
     Route: 048
     Dates: start: 20130507
  3. VERAPAMIL [Concomitant]
     Route: 048
  4. FLUVOXAMINE [Concomitant]
     Route: 048
  5. TRAMADOL/PARACETAMOL [Concomitant]
     Dosage: 37.5/ 325 MG, 1 DF, AS REQUIRED
     Route: 048
  6. OXAZEPAM [Concomitant]
     Route: 048
  7. ACENOCOUMAROL [Concomitant]
     Route: 048
  8. FLECAINIDE [Concomitant]
     Route: 048

REACTIONS (4)
  - Dysphonia [Unknown]
  - Tachycardia [Unknown]
  - Dysphonia [Unknown]
  - Erythema [Unknown]
